FAERS Safety Report 21849750 (Version 1)
Quarter: 2023Q1

REPORT INFORMATION
  Report Type: Spontaneous
  Country: US (occurrence: US)
  Receive Date: 20230111
  Receipt Date: 20230111
  Transmission Date: 20230417
  Serious: No
  Sender: FDA-Public Use
  Company Number: US-FOUNDATIONCONSUMERHC-2022-US-024273

PATIENT
  Age: 17 Year
  Sex: Female
  Weight: 69.85 kg

DRUGS (2)
  1. PLAN B ONE-STEP [Suspect]
     Active Substance: LEVONORGESTREL
     Indication: Post coital contraception
     Dosage: 1.5 MG TABLET X3 USES
     Route: 048
     Dates: start: 20220829, end: 20220928
  2. TYLENOL [Concomitant]
     Active Substance: ACETAMINOPHEN
     Dosage: USED AS NEEDED

REACTIONS (7)
  - Menstruation delayed [Not Recovered/Not Resolved]
  - Intentional product misuse [Recovered/Resolved]
  - Menstruation irregular [Recovered/Resolved]
  - Pyrexia [Recovered/Resolved]
  - Arthralgia [Recovered/Resolved]
  - Neck pain [Recovered/Resolved]
  - Product use in unapproved indication [Recovered/Resolved]

NARRATIVE: CASE EVENT DATE: 20220829
